FAERS Safety Report 7570708-8 (Version None)
Quarter: 2011Q2

REPORT INFORMATION
  Report Type: 
  Country: None (occurrence: None)
  Receive Date: 20110624
  Receipt Date: 20110513
  Transmission Date: 20111010
  Serious: No
  Sender: FDA-Public Use
  Company Number: US-ALLERGAN-1106636US

PATIENT
  Age: 70 Year
  Sex: Female

DRUGS (2)
  1. LATISSE [Suspect]
     Indication: TRICHORRHEXIS
     Dosage: 1 GTT, UNK
     Route: 061
     Dates: start: 20110201
  2. LATISSE [Suspect]
     Dosage: UNK
     Dates: start: 20100601

REACTIONS (1)
  - TRICHORRHEXIS [None]
